FAERS Safety Report 23364411 (Version 2)
Quarter: 2024Q1

REPORT INFORMATION
  Report Type: Spontaneous
  Country: US (occurrence: US)
  Receive Date: 20240104
  Receipt Date: 20240129
  Transmission Date: 20240410
  Serious: No
  Sender: FDA-Public Use
  Company Number: US-JAZZ PHARMACEUTICALS-2023-US-025475

PATIENT
  Age: 54 Year
  Sex: Female
  Weight: 112 kg

DRUGS (2)
  1. ZEPZELCA [Suspect]
     Active Substance: LURBINECTEDIN
     Indication: Small cell lung cancer
     Dosage: UNK
  2. ZEPZELCA [Suspect]
     Active Substance: LURBINECTEDIN
     Dosage: 6 MILLIGRAM, Q21 DAYS
     Route: 042
     Dates: start: 20231207

REACTIONS (1)
  - Thrombophlebitis [Recovered/Resolved]

NARRATIVE: CASE EVENT DATE: 20231228
